FAERS Safety Report 5018756-6 (Version None)
Quarter: 2006Q2

REPORT INFORMATION
  Report Type: 
  Country: None (occurrence: None)
  Receive Date: 20060525
  Receipt Date: 20060517
  Transmission Date: 20061013
  Serious: Yes (Other)
  Sender: FDA-Public Use
  Company Number: CHPA2006US04913

PATIENT
  Sex: Male

DRUGS (1)
  1. 4 WAY FAST ACTING NASAL SPRAY (NCH) (PHENYLEPHRINE)NASAL SPRAY [Suspect]
     Indication: NASAL DRYNESS
     Dosage: 1 SPRAY IN EACH NOSTRIL DAILY, NASAL
     Route: 045

REACTIONS (2)
  - DRUG ABUSER [None]
  - DRUG DEPENDENCE [None]
